FAERS Safety Report 8250863-7 (Version None)
Quarter: 2012Q2

REPORT INFORMATION
  Report Type: 
  Country: None (occurrence: None)
  Receive Date: 20120402
  Receipt Date: 20120330
  Transmission Date: 20120825
  Serious: Yes (Death, Other)
  Sender: FDA-Public Use
  Company Number: PHHY2012FR020119

PATIENT
  Sex: Female

DRUGS (5)
  1. VAXIGRIP [Suspect]
     Route: 030
     Dates: start: 20111201
  2. BUDESONIDE [Suspect]
     Indication: ASTHMA
     Dosage: 2 DF, QD
  3. PRAXILENE [Suspect]
     Dosage: 1 DF, BID
     Route: 048
     Dates: start: 20110501, end: 20111222
  4. INDAPAMIDE [Suspect]
     Indication: HYPERTENSION
     Dosage: 1 DF, DAILY
     Dates: end: 20111222
  5. FORADIL [Suspect]
     Indication: ASTHMA
     Dosage: 1 DF, BID

REACTIONS (9)
  - DEATH [None]
  - HEPATITIS FULMINANT [None]
  - HEPATIC ENCEPHALOPATHY [None]
  - BIOPSY LIVER ABNORMAL [None]
  - ALANINE AMINOTRANSFERASE INCREASED [None]
  - URINE COPPER INCREASED [None]
  - ASPARTATE AMINOTRANSFERASE INCREASED [None]
  - BLOOD ALKALINE PHOSPHATASE INCREASED [None]
  - GAMMA-GLUTAMYLTRANSFERASE INCREASED [None]
